FAERS Safety Report 15482807 (Version 1)
Quarter: 2018Q4

REPORT INFORMATION
  Report Type: Spontaneous
  Country: US (occurrence: US)
  Receive Date: 20181003
  Receipt Date: 20181003
  Transmission Date: 20190205
  Serious: No
  Sender: FDA-Public Use
  Company Number: None

PATIENT
  Age: 91 Year
  Sex: Male
  Weight: 88.45 kg

DRUGS (15)
  1. AMLODIPINE BESYLATE. [Concomitant]
     Active Substance: AMLODIPINE BESYLATE
  2. TRAZODONE HYDROCHLORIDE. [Concomitant]
     Active Substance: TRAZODONE HYDROCHLORIDE
  3. VITALEA MULTIVITAMIN [Concomitant]
  4. FLUTICASONE PROPIONATE. [Concomitant]
     Active Substance: FLUTICASONE PROPIONATE
  5. POTASSIUM CL ER [Concomitant]
     Active Substance: POTASSIUM CHLORIDE
  6. VALSARTAN 160 MG [Suspect]
     Active Substance: VALSARTAN
     Indication: HYPERTENSION
     Dosage: ?          QUANTITY:1 DF DOSAGE FORM;?
     Route: 048
     Dates: start: 20180801, end: 20180828
  7. ATORVASTATIN CALCIUM. [Concomitant]
     Active Substance: ATORVASTATIN CALCIUM
  8. CAL MAG PLUS [Concomitant]
  9. PRESERVISION VISIONSION AREDS 2 [Concomitant]
  10. ROPINEROLE HCL [Concomitant]
  11. SYMBICORT AER [Concomitant]
  12. FISH OIL [Concomitant]
     Active Substance: FISH OIL
  13. WARFARIN [Concomitant]
     Active Substance: WARFARIN
  14. VITAMIN D3 [Concomitant]
     Active Substance: CHOLECALCIFEROL
  15. BYSTOLIC [Concomitant]
     Active Substance: NEBIVOLOL HYDROCHLORIDE

REACTIONS (4)
  - Food allergy [None]
  - Rash pruritic [None]
  - International normalised ratio increased [None]
  - Recalled product administered [None]

NARRATIVE: CASE EVENT DATE: 20180816
